FAERS Safety Report 17825854 (Version 2)
Quarter: 2020Q2

REPORT INFORMATION
  Report Type: Not Available
  Country: None (occurrence: US)
  Receive Date: 20200526
  Receipt Date: 20200618
  Transmission Date: 20200714
  Serious: No
  Sender: FDA-Public Use
  Company Number: US-NEUROCRINE BIOSCIENCES INC.-2020NBI01561

PATIENT
  Age: 69 Year
  Sex: Male

DRUGS (1)
  1. INGREZZA [Suspect]
     Active Substance: VALBENAZINE
     Indication: TARDIVE DYSKINESIA
     Dosage: AT BEDTIME
     Route: 048
     Dates: start: 202005

REACTIONS (3)
  - Abdominal pain upper [Unknown]
  - Feeling cold [Unknown]
  - Insomnia [Unknown]

NARRATIVE: CASE EVENT DATE: 202005
